FAERS Safety Report 9877353 (Version 2)
Quarter: 2014Q1

REPORT INFORMATION
  Report Type: Spontaneous
  Country: JP (occurrence: JP)
  Receive Date: 20140206
  Receipt Date: 20140206
  Transmission Date: 20141002
  Serious: Yes (Other)
  Sender: FDA-Public Use
  Company Number: JP-ASTELLAS-2013JP010849

PATIENT
  Age: 39 Year
  Sex: Female
  Weight: 49.3 kg

DRUGS (4)
  1. PROGRAF [Suspect]
     Indication: ACUTE GRAFT VERSUS HOST DISEASE IN SKIN
     Route: 048
  2. PROGRAF [Suspect]
     Indication: CHRONIC GRAFT VERSUS HOST DISEASE
     Dosage: 0.1 MG, QOD
     Route: 048
  3. PROGRAF [Suspect]
     Dosage: 1.2 MG, UNKNOWN/D
     Route: 048
  4. PROGRAF [Suspect]
     Dosage: 0.8 MG, UNKNOWN/D
     Route: 048

REACTIONS (5)
  - Drug ineffective [Unknown]
  - Graft versus host disease [Unknown]
  - Chronic graft versus host disease [Unknown]
  - Hyponatraemia [Recovered/Resolved]
  - Nephropathy [Recovered/Resolved]
